FAERS Safety Report 5302865-8 (Version None)
Quarter: 2007Q2

REPORT INFORMATION
  Report Type: 
  Country: None (occurrence: None)
  Receive Date: 20070419
  Receipt Date: 20070419
  Transmission Date: 20071010
  Serious: Yes (Other)
  Sender: FDA-Public Use
  Company Number: None

PATIENT
  Age: 2 Year
  Sex: Male
  Weight: 12.2471 kg

DRUGS (2)
  1. OMNICEF [Suspect]
     Indication: SINUSITIS
     Dosage: 3.75ML 1XDAY PO
     Route: 048
     Dates: start: 20070414, end: 20070415
  2. OMNICEF [Suspect]
     Indication: SINUSITIS
     Dosage: 3.75ML 1XDAY PO
     Route: 048
     Dates: start: 20070417, end: 20070417

REACTIONS (6)
  - ANOREXIA [None]
  - CRYING [None]
  - DIARRHOEA [None]
  - IRRITABILITY [None]
  - THIRST [None]
  - VOMITING [None]
